FAERS Safety Report 4296212-0 (Version None)
Quarter: 2004Q1

REPORT INFORMATION
  Report Type: 
  Country: None (occurrence: None)
  Receive Date: 20040217
  Receipt Date: 20030917
  Transmission Date: 20041129
  Serious: Yes (Other)
  Sender: FDA-Public Use
  Company Number: US-GLAXOSMITHKLINE-A0426350A

PATIENT
  Age: 45 Year
  Sex: Female

DRUGS (6)
  1. LAMICTAL [Suspect]
     Indication: MOOD SWINGS
     Dosage: 25MG TWICE PER DAY
     Route: 048
     Dates: start: 20030902, end: 20030915
  2. IBUPROFEN [Concomitant]
  3. MULTI-VITAMIN [Concomitant]
  4. PROZAC [Concomitant]
     Indication: DEPRESSION
     Route: 048
     Dates: start: 20010625, end: 20011001
  5. CLONAZEPAM [Concomitant]
     Dosage: .5MG AT NIGHT
     Route: 048
     Dates: start: 20011005
  6. GLUCOSAMINE [Concomitant]

REACTIONS (7)
  - BODY TEMPERATURE INCREASED [None]
  - DIZZINESS [None]
  - DRUG INEFFECTIVE [None]
  - HEADACHE [None]
  - LYMPHADENOPATHY [None]
  - RASH PRURITIC [None]
  - SOMNOLENCE [None]
